FAERS Safety Report 6110320-0 (Version None)
Quarter: 2009Q1

REPORT INFORMATION
  Report Type: 
  Country: None (occurrence: None)
  Receive Date: 20090310
  Receipt Date: 20080703
  Transmission Date: 20090719
  Serious: Yes (Hospitalization, Other)
  Sender: FDA-Public Use
  Company Number: FR-PFIZER INC-2008043489

PATIENT

DRUGS (11)
  1. MARAVIROC [Suspect]
     Indication: HIV INFECTION
     Route: 048
     Dates: start: 20070618
  2. PREZISTA [Concomitant]
     Dates: start: 20070618
  3. MK-0518 [Concomitant]
     Dates: start: 20070618
  4. RITONAVIR [Concomitant]
     Dates: start: 20040329
  5. TRUVADA [Concomitant]
     Dates: start: 20070618
  6. TERALITHE [Concomitant]
     Dates: start: 20070514
  7. ALL OTHER THERAPEUTIC PRODUCTS [Concomitant]
     Dates: start: 20070514
  8. METFORMIN HCL [Concomitant]
     Dates: start: 20060306
  9. GLYBURIDE [Concomitant]
     Dates: start: 20060306
  10. VASTEN [Concomitant]
     Dates: start: 20010207
  11. TRIFLUCAN [Concomitant]
     Dates: start: 20070327

REACTIONS (3)
  - CHILLS [None]
  - HYPERTHERMIA [None]
  - PNEUMONIA LEGIONELLA [None]
